FAERS Safety Report 12687224 (Version 1)
Quarter: 2016Q3

REPORT INFORMATION
  Report Type: Spontaneous
  Country: BR (occurrence: BR)
  Receive Date: 20160826
  Receipt Date: 20160826
  Transmission Date: 20161109
  Serious: Yes (Other)
  Sender: FDA-Public Use
  Company Number: BR-AMGEN-BRASP2016083830

PATIENT
  Age: 61 Year
  Sex: Female

DRUGS (2)
  1. ENBREL [Suspect]
     Active Substance: ETANERCEPT
     Dosage: UNK
     Route: 065
     Dates: start: 201511
  2. ENBREL [Suspect]
     Active Substance: ETANERCEPT
     Indication: PRODUCT USED FOR UNKNOWN INDICATION
     Dosage: 50 MG, UNK
     Route: 065
     Dates: start: 20160201

REACTIONS (18)
  - Memory impairment [Unknown]
  - Dizziness [Unknown]
  - Abasia [Not Recovered/Not Resolved]
  - Muscle spasms [Unknown]
  - Injection site haematoma [Unknown]
  - Injection site erythema [Unknown]
  - Injection site swelling [Unknown]
  - Nervousness [Unknown]
  - Pain [Not Recovered/Not Resolved]
  - Drug ineffective [Unknown]
  - Crying [Unknown]
  - Pain in extremity [Unknown]
  - Gait disturbance [Unknown]
  - Feeling abnormal [Unknown]
  - Arthralgia [Unknown]
  - Throat irritation [Unknown]
  - Mobility decreased [Not Recovered/Not Resolved]
  - Tearfulness [Unknown]

NARRATIVE: CASE EVENT DATE: 2016
